FAERS Safety Report 10250897 (Version 12)
Quarter: 2015Q4

REPORT INFORMATION
  Report Type: Spontaneous
  Country: HR (occurrence: HR)
  Receive Date: 20140620
  Receipt Date: 20151026
  Transmission Date: 20160304
  Serious: Yes (Other)
  Sender: FDA-Public Use
  Company Number: PHHY2014HR048647

PATIENT
  Age: 33 Year
  Sex: Female
  Weight: 65 kg

DRUGS (6)
  1. LINDYNETTE [Suspect]
     Active Substance: ETHINYL ESTRADIOL\GESTODENE
     Dosage: 1 DF, UNK
     Route: 048
     Dates: start: 20140106
  2. PRENATAL [Concomitant]
     Active Substance: VITAMINS
     Indication: PRODUCT USED FOR UNKNOWN INDICATION
     Route: 048
  3. DUPHASTON 10 MG FILM COATED TABLETS [Concomitant]
     Indication: PRODUCT USED FOR UNKNOWN INDICATION
  4. LINDYNETTE [Suspect]
     Active Substance: ETHINYL ESTRADIOL\GESTODENE
     Dosage: 1 DF, UNK
     Route: 048
     Dates: start: 20150224
  5. LINDYNETTE [Suspect]
     Active Substance: ETHINYL ESTRADIOL\GESTODENE
     Indication: CONTRACEPTION
     Dosage: 1 DF, UNK
     Route: 048
     Dates: start: 201312, end: 20131223
  6. MAGNESIUM [Concomitant]
     Active Substance: MAGNESIUM
     Indication: PRODUCT USED FOR UNKNOWN INDICATION
     Route: 048

REACTIONS (11)
  - Blood cholesterol increased [Not Recovered/Not Resolved]
  - Abdominal pain [Unknown]
  - Normal newborn [Unknown]
  - Inappropriate schedule of drug administration [Unknown]
  - Maternal exposure during pregnancy [Not Recovered/Not Resolved]
  - Abortion threatened [Unknown]
  - Lipids increased [Not Recovered/Not Resolved]
  - Red cell distribution width increased [Unknown]
  - Pregnancy on oral contraceptive [Not Recovered/Not Resolved]
  - Blood iron increased [Unknown]
  - Muscle spasms [Unknown]

NARRATIVE: CASE EVENT DATE: 20140305
